FAERS Safety Report 4628551-5 (Version None)
Quarter: 2005Q2

REPORT INFORMATION
  Report Type: 
  Country: None (occurrence: None)
  Receive Date: 20050404
  Receipt Date: 20050323
  Transmission Date: 20051028
  Serious: Yes (Life-Threatening, Hospitalization)
  Sender: FDA-Public Use
  Company Number: 2004-11-0135

PATIENT
  Age: 19 Month
  Sex: Male

DRUGS (2)
  1. CLARITIN [Suspect]
     Indication: RHINORRHOEA
     Dosage: 5ML Q12HRS ORAL
     Route: 048
  2. RHINATHIOL SYRUP [Suspect]
     Indication: RHINORRHOEA
     Dosage: 5ML Q12HRS ORAL
     Route: 048

REACTIONS (7)
  - ANXIETY [None]
  - ARRHYTHMIA [None]
  - ATRIAL FIBRILLATION [None]
  - CRYING [None]
  - DRUG INEFFECTIVE [None]
  - HEART RATE INCREASED [None]
  - PNEUMONIA [None]
